FAERS Safety Report 23205976 (Version 9)
Quarter: 2024Q1

REPORT INFORMATION
  Report Type: Report from Study
  Country: ES (occurrence: ES)
  Receive Date: 20231120
  Receipt Date: 20240220
  Transmission Date: 20240410
  Serious: Yes (Hospitalization)
  Sender: FDA-Public Use
  Company Number: ES-ABBVIE-5496306

PATIENT
  Age: 71 Year
  Sex: Male
  Weight: 72 kg

DRUGS (3)
  1. CARBIDOPA\LEVODOPA [Suspect]
     Active Substance: CARBIDOPA\LEVODOPA
     Indication: Parkinson^s disease
     Route: 050
     Dates: start: 20190606
  2. CARBIDOPA\LEVODOPA [Suspect]
     Active Substance: CARBIDOPA\LEVODOPA
  3. PRAMIPEXOLE [Concomitant]
     Active Substance: PRAMIPEXOLE\PRAMIPEXOLE DIHYDROCHLORIDE
     Indication: Parkinson^s disease
     Dosage: FIRST ADMIN DATE- PRIOR TO DUODOPA
     Route: 048
     Dates: end: 20231113

REACTIONS (17)
  - Embedded device [Recovered/Resolved]
  - Therapeutic product effect incomplete [Not Recovered/Not Resolved]
  - Stoma site haemorrhage [Recovered/Resolved]
  - Motor dysfunction [Not Recovered/Not Resolved]
  - Stoma site discharge [Not Recovered/Not Resolved]
  - Device issue [Unknown]
  - Unevaluable event [Unknown]
  - Hallucination [Recovering/Resolving]
  - Stoma site infection [Recovered/Resolved]
  - Stoma site hypergranulation [Recovered/Resolved]
  - Stoma site discharge [Recovered/Resolved]
  - Stoma creation [Recovered/Resolved]
  - Stoma site infection [Recovered/Resolved]
  - Delusion [Recovering/Resolving]
  - On and off phenomenon [Not Recovered/Not Resolved]
  - Stoma site discharge [Recovered/Resolved]
  - Asthenia [Unknown]

NARRATIVE: CASE EVENT DATE: 20230901
